FAERS Safety Report 12213623 (Version 1)
Quarter: 2016Q1

REPORT INFORMATION
  Report Type: Spontaneous
  Country: CA (occurrence: CA)
  Receive Date: 20160328
  Receipt Date: 20160328
  Transmission Date: 20160526
  Serious: Yes (Other)
  Sender: FDA-Public Use
  Company Number: CA-VIIV HEALTHCARE LIMITED-CA2016GSK042028

PATIENT
  Age: 50 Year
  Sex: Male

DRUGS (5)
  1. HARVONI [Suspect]
     Active Substance: LEDIPASVIR\SOFOSBUVIR
     Indication: PRODUCT USED FOR UNKNOWN INDICATION
     Dosage: UNK
  2. 3TC [Suspect]
     Active Substance: LAMIVUDINE
     Indication: PRODUCT USED FOR UNKNOWN INDICATION
     Dosage: UNK
     Dates: start: 2011
  3. RALTEGRAVIR. [Suspect]
     Active Substance: RALTEGRAVIR
     Indication: PRODUCT USED FOR UNKNOWN INDICATION
     Dosage: UNK
     Dates: start: 2011
  4. KALETRA [Suspect]
     Active Substance: LOPINAVIR\RITONAVIR
     Indication: PRODUCT USED FOR UNKNOWN INDICATION
     Dosage: UNK
     Dates: start: 2011
  5. MARAVIROC [Suspect]
     Active Substance: MARAVIROC
     Indication: PRODUCT USED FOR UNKNOWN INDICATION
     Dosage: UNK
     Dates: start: 2011

REACTIONS (2)
  - Drug level changed [Unknown]
  - Drug-induced liver injury [Unknown]
